FAERS Safety Report 4948358-9 (Version None)
Quarter: 2006Q1

REPORT INFORMATION
  Report Type: 
  Country: None (occurrence: None)
  Receive Date: 20060127
  Receipt Date: 20050218
  Transmission Date: 20060701
  Serious: Yes (Hospitalization)
  Sender: FDA-Public Use
  Company Number: 05-02-0247

PATIENT
  Age: 22 Year
  Sex: Male
  Weight: 129.2752 kg

DRUGS (3)
  1. CLOZAPINE [Suspect]
     Indication: SCHIZOPHRENIA, UNDIFFERENTIATED TYPE
     Dosage: 375MG QD, ORAL
     Route: 048
     Dates: start: 20041201, end: 20041201
  2. ZOLOFT [Concomitant]
  3. GEODON [Concomitant]

REACTIONS (2)
  - DIABETIC KETOACIDOSIS [None]
  - PNEUMONIA [None]
